FAERS Safety Report 15644859 (Version 1)
Quarter: 2018Q4

REPORT INFORMATION
  Report Type: Spontaneous
  Country: FR (occurrence: FR)
  Receive Date: 20181121
  Receipt Date: 20181121
  Transmission Date: 20190205
  Serious: Yes (Hospitalization)
  Sender: FDA-Public Use
  Company Number: FR-ASCEND THERAPEUTICS-2059166

PATIENT
  Age: 64 Year
  Sex: Female

DRUGS (5)
  1. LEVOTHYROX (LEVOTHYROXINE) [Concomitant]
     Route: 048
  2. ZYMAD (COLECALCIFEROL) [Concomitant]
     Route: 048
  3. ESTROGEL [Suspect]
     Active Substance: ESTRADIOL
     Indication: HORMONE REPLACEMENT THERAPY
     Route: 003
  4. ECLARAN(BENZOYL PEROXIDE) [Concomitant]
     Route: 003
  5. ESTIMA (PROGESTERONE) [Suspect]
     Active Substance: PROGESTERONE
     Route: 067
     Dates: start: 201611

REACTIONS (1)
  - Meningioma [Not Recovered/Not Resolved]

NARRATIVE: CASE EVENT DATE: 201809
